FAERS Safety Report 20476002 (Version 1)
Quarter: 2022Q1

REPORT INFORMATION
  Report Type: Spontaneous
  Country: JP (occurrence: JP)
  Receive Date: 20220215
  Receipt Date: 20220215
  Transmission Date: 20220424
  Serious: Yes (Hospitalization)
  Sender: FDA-Public Use
  Company Number: JP-DSJP-DSJ-2022-104753

PATIENT
  Age: 51 Year
  Sex: Female

DRUGS (1)
  1. EDOXABAN TOSYLATE [Suspect]
     Active Substance: EDOXABAN TOSYLATE
     Indication: Thrombosis prophylaxis
     Dosage: 30MG/DAY
     Route: 048
     Dates: start: 2021, end: 2021

REACTIONS (2)
  - Abdominal wall haematoma [Recovering/Resolving]
  - Muscle abscess [Recovering/Resolving]

NARRATIVE: CASE EVENT DATE: 20210101
